FAERS Safety Report 15742906 (Version 2)
Quarter: 2018Q4

REPORT INFORMATION
  Report Type: Spontaneous
  Country: ES (occurrence: ES)
  Receive Date: 20181220
  Receipt Date: 20181228
  Transmission Date: 20190205
  Serious: Yes (Disabling, Other)
  Sender: FDA-Public Use
  Company Number: ES-AUROBINDO-AUR-APL-2018-032116

PATIENT
  Age: 65 Year
  Sex: Male

DRUGS (9)
  1. ACETYLSALICYLIC ACID [Concomitant]
     Active Substance: ASPIRIN
     Indication: INFARCTION
  2. ACETYLSALICYLIC ACID [Concomitant]
     Active Substance: ASPIRIN
     Indication: MYOCARDIAL INFARCTION
     Dosage: 100 MILLIGRAM, ONCE A DAY ((0-1-0)
     Route: 048
  3. OMEPRAZOL                          /00661201/ [Concomitant]
     Active Substance: OMEPRAZOLE
     Indication: GASTROOESOPHAGEAL REFLUX DISEASE
     Dosage: 20 MILLIGRAM, ONCE A DAY (1-0-0)
     Route: 048
  4. AMIODARONE TABLETS [Suspect]
     Active Substance: AMIODARONE
     Indication: ARRHYTHMIA
     Dosage: 300 MILLIGRAM (0,5-0,5-0)
     Route: 048
  5. TICLODIPINE [Concomitant]
     Indication: MYOCARDIAL INFARCTION
     Dosage: 250 MILLIGRAM, ONCE A DAY (0-1-0)
     Route: 065
  6. SIMVASTATIN 20MG FILM-COATED TABLETS [Interacting]
     Active Substance: SIMVASTATIN
     Indication: HYPERCHOLESTEROLAEMIA
     Dosage: 20 MILLIGRAM, ONCE A DAY (QD)
     Route: 048
     Dates: start: 2016
  7. TICLODIPINE [Concomitant]
     Indication: INFARCTION
  8. AMIODARONE TABLETS [Interacting]
     Active Substance: AMIODARONE
     Dosage: 75 MILLIGRAM, TWO TIMES A DAY
     Route: 048
  9. BISOPROLOL [Concomitant]
     Active Substance: BISOPROLOL
     Indication: SINUS ARRHYTHMIA
     Dosage: 5 MILLIGRAM, ONCE A DAY (1-0-0)
     Route: 048

REACTIONS (2)
  - Myalgia [Recovered/Resolved]
  - Drug interaction [Unknown]

NARRATIVE: CASE EVENT DATE: 2017
